FAERS Safety Report 6946649-3 (Version None)
Quarter: 2010Q3

REPORT INFORMATION
  Report Type: 
  Country: None (occurrence: None)
  Receive Date: 20100827
  Receipt Date: 20090810
  Transmission Date: 20110219
  Serious: No
  Sender: FDA-Public Use
  Company Number: US-ABBOTT-09P-163-0590573-00

PATIENT
  Sex: Male
  Weight: 108.96 kg

DRUGS (5)
  1. NIASPAN [Suspect]
     Indication: HIGH DENSITY LIPOPROTEIN DECREASED
     Dates: start: 20090803
  2. PRAVASTATIN [Concomitant]
     Indication: BLOOD CHOLESTEROL INCREASED
  3. LISINOPRIL [Concomitant]
     Indication: HYPERTENSION
  4. METFORMIN [Concomitant]
     Indication: TYPE 2 DIABETES MELLITUS
  5. TIMOPTIC [Concomitant]
     Indication: GLAUCOMA

REACTIONS (2)
  - COUGH [None]
  - THROAT IRRITATION [None]
